FAERS Safety Report 24445707 (Version 4)
Quarter: 2025Q4

REPORT INFORMATION
  Report Type: Report from Study
  Country: US (occurrence: US)
  Receive Date: 20241016
  Receipt Date: 20251224
  Transmission Date: 20260117
  Serious: Yes (Hospitalization, Other)
  Sender: PFIZER
  Company Number: US-PFIZER INC-PV202400133792

PATIENT
  Age: 57 Year
  Sex: Female

DRUGS (4)
  1. XELJANZ [Suspect]
     Active Substance: TOFACITINIB CITRATE
     Indication: Rheumatoid arthritis
     Dosage: 5 MG, 2X/DAY
     Route: 048
     Dates: start: 202409
  2. XELJANZ [Suspect]
     Active Substance: TOFACITINIB CITRATE
     Dosage: 5 MG, 2X/DAY
     Route: 048
     Dates: start: 202409
  3. XELJANZ [Suspect]
     Active Substance: TOFACITINIB CITRATE
     Dosage: 5 MG, 2X/DAY
     Route: 048
  4. HUMIRA [Concomitant]
     Active Substance: ADALIMUMAB
     Dosage: HUMIRA PEN (2/BOX) (ABB)
     Dates: end: 202412

REACTIONS (16)
  - Vomiting [Unknown]
  - Dehydration [Unknown]
  - Anaemia [Unknown]
  - Haematochezia [Unknown]
  - Haemoglobin decreased [Recovering/Resolving]
  - Condition aggravated [Recovering/Resolving]
  - Pain [Unknown]
  - Blood cholesterol increased [Unknown]
  - Therapeutic product effect decreased [Unknown]
  - Gastrointestinal disorder [Unknown]
  - Change of bowel habit [Unknown]
  - Abdominal pain upper [Unknown]
  - Nausea [Unknown]
  - Gastrointestinal mucosal disorder [Unknown]
  - Polyp [Unknown]
  - Pyrexia [Unknown]

NARRATIVE: CASE EVENT DATE: 20241001
